FAERS Safety Report 9338565 (Version 1)
Quarter: 2013Q2

REPORT INFORMATION
  Report Type: Spontaneous
  Country: US (occurrence: US)
  Receive Date: 20130610
  Receipt Date: 20130610
  Transmission Date: 20140414
  Serious: No
  Sender: FDA-Public Use
  Company Number: US-009507513-1306USA002619

PATIENT
  Age: 23 Year
  Sex: Male

DRUGS (2)
  1. SAPHRIS [Suspect]
     Indication: SCHIZOAFFECTIVE DISORDER
     Dosage: 10 MG, BID
     Route: 060
     Dates: start: 20110524
  2. BENZTROPINE MESYLATE [Concomitant]

REACTIONS (2)
  - Oral mucosal blistering [Unknown]
  - Mouth ulceration [Unknown]
